FAERS Safety Report 5218545-3 (Version None)
Quarter: 2006Q4

REPORT INFORMATION
  Report Type: 
  Country: None (occurrence: None)
  Receive Date: 20061121
  Receipt Date: 20061014
  Transmission Date: 20070319
  Serious: No
  Sender: FDA-Public Use
  Company Number: TPA2006A01804

PATIENT
  Sex: Female

DRUGS (1)
  1. ROZEREM [Suspect]
     Dosage: UNK., UNKNOWN, PER ORAL
     Route: 048

REACTIONS (3)
  - ANXIETY [None]
  - HEART RATE INCREASED [None]
  - PARADOXICAL DRUG REACTION [None]
